FAERS Safety Report 4581619-4 (Version None)
Quarter: 2005Q1

REPORT INFORMATION
  Report Type: 
  Country: None (occurrence: None)
  Receive Date: 20050214
  Receipt Date: 20041201
  Transmission Date: 20050727
  Serious: No
  Sender: FDA-Public Use
  Company Number: US-GLAXOSMITHKLINE-A0536067A

PATIENT
  Age: 40 Year
  Sex: Female
  Weight: 63.2 kg

DRUGS (3)
  1. LAMICTAL [Suspect]
     Dosage: 50MG AS DIRECTED
     Route: 048
     Dates: start: 20041126, end: 20041130
  2. ZYPREXA [Concomitant]
     Dosage: 15MG AT NIGHT
     Route: 048
     Dates: start: 20040901
  3. BENADRYL [Concomitant]
     Dosage: 150MG UNKNOWN
     Route: 048
     Dates: start: 20040101

REACTIONS (1)
  - RASH [None]
